FAERS Safety Report 7245041-4 (Version None)
Quarter: 2011Q1

REPORT INFORMATION
  Report Type: 
  Country: None (occurrence: None)
  Receive Date: 20110126
  Receipt Date: 20110113
  Transmission Date: 20110831
  Serious: Yes (Other)
  Sender: FDA-Public Use
  Company Number: US-CELGENEUS-163-21880-11011857

PATIENT
  Sex: Female

DRUGS (4)
  1. REVLIMID [Suspect]
     Route: 048
     Dates: start: 20110101
  2. REVLIMID [Suspect]
     Dosage: 10-15 MG
     Route: 048
     Dates: start: 20100901
  3. REVLIMID [Suspect]
     Dosage: 10-15 MG
     Route: 048
     Dates: start: 20100101
  4. REVLIMID [Suspect]
     Indication: MULTIPLE MYELOMA
     Route: 048
     Dates: start: 20090801

REACTIONS (1)
  - BONE MARROW FAILURE [None]
